FAERS Safety Report 9986095 (Version 1)
Quarter: 2014Q1

REPORT INFORMATION
  Report Type: Report from Study
  Country: US (occurrence: US)
  Receive Date: 20140307
  Receipt Date: 20140307
  Transmission Date: 20141002
  Serious: No
  Sender: FDA-Public Use
  Company Number: US-ABBVIE-13P-163-1089348-00

PATIENT
  Age: 21 Year
  Sex: Female

DRUGS (5)
  1. HUMIRA [Suspect]
     Indication: CROHN^S DISEASE
     Dates: start: 20130211
  2. ASACOL [Concomitant]
     Indication: CROHN^S DISEASE
     Dosage: 6 TABS, TWICE DAILY
  3. URSODIOL [Concomitant]
     Indication: CROHN^S DISEASE
  4. VITAMIN D [Concomitant]
     Indication: VITAMIN SUPPLEMENTATION
  5. SERAX [Concomitant]
     Indication: ANXIETY

REACTIONS (1)
  - Fear of injection [Unknown]
